FAERS Safety Report 7611212-8 (Version None)
Quarter: 2011Q3

REPORT INFORMATION
  Report Type: 
  Country: None (occurrence: None)
  Receive Date: 20110707
  Receipt Date: 20110630
  Transmission Date: 20111222
  Serious: Yes (Other)
  Sender: FDA-Public Use
  Company Number: CL-321-2011

PATIENT
  Age: 9 Year
  Sex: Female

DRUGS (2)
  1. FLUCONAZOLE [Suspect]
     Indication: VULVOVAGINAL CANDIDIASIS
     Dosage: 100 MG, OD, ORAL
     Route: 048
  2. FLUTICASONE [Suspect]
     Indication: ASTHMA
     Dosage: 110 UG/ACTUATION, INH
     Route: 055

REACTIONS (4)
  - VULVOVAGINAL CANDIDIASIS [None]
  - ADRENAL INSUFFICIENCY [None]
  - DRUG INTERACTION [None]
  - CUSHING'S SYNDROME [None]
